APPROVED DRUG PRODUCT: BIVALIRUDIN
Active Ingredient: BIVALIRUDIN
Strength: 250MG/VIAL
Dosage Form/Route: INJECTABLE;INTRAVENOUS
Application: A201577 | Product #001 | TE Code: AP
Applicant: DR REDDYS LABORATORIES LTD
Approved: May 26, 2017 | RLD: No | RS: No | Type: RX